FAERS Safety Report 14026685 (Version 1)
Quarter: 2017Q3

REPORT INFORMATION
  Report Type: Spontaneous
  Country: DK (occurrence: DK)
  Receive Date: 20170929
  Receipt Date: 20170929
  Transmission Date: 20171128
  Serious: Yes (Hospitalization)
  Sender: FDA-Public Use
  Company Number: DK-BAUSCH-BL-2017-027778

PATIENT
  Age: 1 Year
  Sex: Male
  Weight: 11.9 kg

DRUGS (1)
  1. ELIDEL [Suspect]
     Active Substance: PIMECROLIMUS
     Indication: DERMATITIS ATOPIC
     Route: 003
     Dates: start: 201706, end: 20170802

REACTIONS (1)
  - Hand-foot-and-mouth disease [Recovering/Resolving]

NARRATIVE: CASE EVENT DATE: 20170829
